FAERS Safety Report 25455086 (Version 3)
Quarter: 2025Q3

REPORT INFORMATION
  Report Type: Spontaneous
  Country: JP (occurrence: JP)
  Receive Date: 20250619
  Receipt Date: 20250804
  Transmission Date: 20251021
  Serious: Yes (Other)
  Sender: JOHNSON AND JOHNSON
  Company Number: JP-NShinyaku-EVA20250818601001307081

PATIENT
  Age: 7 Year
  Sex: Female

DRUGS (6)
  1. TRACLEER [Suspect]
     Active Substance: BOSENTAN
     Indication: Pulmonary arterial hypertension
     Route: 048
     Dates: end: 2025
  2. TRACLEER [Suspect]
     Active Substance: BOSENTAN
     Route: 048
     Dates: start: 2025, end: 2025
  3. UPTRAVI [Suspect]
     Active Substance: SELEXIPAG
     Indication: Pulmonary arterial hypertension
     Dosage: UNKNOWN
     Route: 048
     Dates: start: 20230611, end: 2025
  4. UPTRAVI [Suspect]
     Active Substance: SELEXIPAG
     Route: 048
     Dates: start: 2025, end: 20250602
  5. REVATIO [Suspect]
     Active Substance: SILDENAFIL CITRATE
     Indication: Pulmonary arterial hypertension
     Route: 048
     Dates: end: 2025
  6. REVATIO [Suspect]
     Active Substance: SILDENAFIL CITRATE
     Route: 048
     Dates: start: 2025, end: 2025

REACTIONS (3)
  - Left ventricular failure [Recovered/Resolved]
  - Increased ventricular preload [Unknown]
  - Off label use [Unknown]

NARRATIVE: CASE EVENT DATE: 20250530
